FAERS Safety Report 12658283 (Version 2)
Quarter: 2016Q3

REPORT INFORMATION
  Report Type: Spontaneous
  Country: US (occurrence: US)
  Receive Date: 20160817
  Receipt Date: 20160831
  Transmission Date: 20161109
  Serious: No
  Sender: FDA-Public Use
  Company Number: US-HORIZON-PEN-0387-2016

PATIENT
  Age: 91 Year
  Sex: Female

DRUGS (2)
  1. PENNSAID [Suspect]
     Active Substance: DICLOFENAC SODIUM
     Indication: MUSCULOSKELETAL PAIN
     Dosage: 1 PUMP ONCE DAILY
  2. CORTISONE [Concomitant]
     Active Substance: CORTISONE\HYDROCORTISONE
     Indication: MUSCULOSKELETAL PAIN

REACTIONS (5)
  - Off label use [Recovered/Resolved]
  - Application site pruritus [Recovered/Resolved]
  - Application site swelling [Recovered/Resolved]
  - Application site rash [Recovered/Resolved]
  - Application site pain [Recovered/Resolved]
